FAERS Safety Report 5618271-2 (Version None)
Quarter: 2008Q1

REPORT INFORMATION
  Report Type: 
  Country: None (occurrence: None)
  Receive Date: 20080206
  Receipt Date: 20080206
  Transmission Date: 20080703
  Serious: Yes (Hospitalization, Other)
  Sender: FDA-Public Use
  Company Number: None

PATIENT
  Age: 45 Year
  Sex: Female

DRUGS (1)
  1. AMIODARONE HYDROCHLORIDE [Suspect]
     Indication: ATRIAL FIBRILLATION
     Dosage: 450MG/250ML DSW  17ML/HR CONTINUOUS IV DRIP
     Route: 041
     Dates: start: 20080129, end: 20080202

REACTIONS (2)
  - EXTRAVASATION [None]
  - PHLEBITIS [None]
